FAERS Safety Report 4289253-0 (Version None)
Quarter: 2004Q1

REPORT INFORMATION
  Report Type: 
  Country: None (occurrence: None)
  Receive Date: 20040206
  Receipt Date: 20040128
  Transmission Date: 20041129
  Serious: Yes (Other)
  Sender: FDA-Public Use
  Company Number: 2003-111069-NL

PATIENT
  Age: 43 Year
  Sex: Female
  Weight: 59.1 kg

DRUGS (5)
  1. REMERON [Suspect]
     Indication: DEPRESSION
     Dosage: 7.5 MG QD ORAL
     Route: 048
  2. PILOCARPINE [Concomitant]
  3. NEURONTIN [Concomitant]
  4. INDOCIN [Concomitant]
  5. VERAPAMIL [Concomitant]

REACTIONS (1)
  - WHITE BLOOD CELL COUNT DECREASED [None]
